FAERS Safety Report 6911041-4 (Version None)
Quarter: 2010Q3

REPORT INFORMATION
  Report Type: 
  Country: None (occurrence: None)
  Receive Date: 20100806
  Receipt Date: 20100805
  Transmission Date: 20110219
  Serious: Yes (Other)
  Sender: FDA-Public Use
  Company Number: B0663267A

PATIENT
  Age: 56 Year
  Sex: Male

DRUGS (15)
  1. KEPPRA [Suspect]
     Indication: CEREBRAL ATROPHY
     Route: 065
     Dates: start: 20081201, end: 20090101
  2. LAMICTAL [Suspect]
     Dosage: 400MG PER DAY
     Route: 048
     Dates: start: 20090101
  3. NEURONTIN [Suspect]
     Indication: PRODUCT USED FOR UNKNOWN INDICATION
     Dosage: 2700MG PER DAY
     Route: 065
  4. DILANTIN [Suspect]
     Indication: CEREBRAL ATROPHY
     Route: 065
     Dates: start: 20081201, end: 20090101
  5. SERTRALINE HYDROCHLORIDE [Suspect]
     Indication: PRODUCT USED FOR UNKNOWN INDICATION
     Dosage: 75MG PER DAY
     Route: 065
  6. EFFEXOR XR [Suspect]
     Indication: DEPRESSION
     Dosage: 187.5MG PER DAY
     Route: 048
     Dates: start: 20070101
  7. SIMVASTATIN [Concomitant]
     Route: 065
  8. COLACE [Concomitant]
     Dosage: 100MG THREE TIMES PER DAY
     Route: 065
  9. DEPAKOTE [Concomitant]
     Route: 065
  10. BACLOFEN [Concomitant]
     Dosage: 10MG TWICE PER DAY
     Route: 065
  11. TEMAZEPAM [Concomitant]
     Dosage: 15MG AS REQUIRED
     Route: 065
  12. LACTULOSE [Concomitant]
     Route: 065
  13. BECONASE [Concomitant]
     Dosage: .42PCT TWICE PER DAY
     Route: 045
  14. LISINOPRIL [Concomitant]
     Route: 048
  15. LOVENOX [Concomitant]
     Route: 065

REACTIONS (5)
  - CEREBRAL ARTERIOVENOUS MALFORMATION HAEMORRHAGIC [None]
  - CONVULSION [None]
  - DRUG EFFECT DECREASED [None]
  - DRUG HYPERSENSITIVITY [None]
  - OFF LABEL USE [None]
